FAERS Safety Report 15994304 (Version 1)
Quarter: 2019Q1

REPORT INFORMATION
  Report Type: Spontaneous
  Country: GB (occurrence: GB)
  Receive Date: 20190222
  Receipt Date: 20190222
  Transmission Date: 20190418
  Serious: Yes (Hospitalization)
  Sender: FDA-Public Use
  Company Number: GB-ACCORD-108265

PATIENT
  Age: 50 Year
  Sex: Female
  Weight: 56.3 kg

DRUGS (6)
  1. OMEPRAZOLE. [Concomitant]
     Active Substance: OMEPRAZOLE
  2. LETROZOLE. [Suspect]
     Active Substance: LETROZOLE
     Indication: BREAST CANCER
     Dosage: TAKE AT NIGHT.
     Route: 048
  3. ADCAL-D3 [Concomitant]
     Active Substance: CALCIUM CARBONATE\CHOLECALCIFEROL
  4. PARACETAMOL [Concomitant]
     Active Substance: ACETAMINOPHEN
  5. ALENDRONATE SODIUM/ALENDRONIC ACID [Concomitant]
  6. ETORICOXIB. [Concomitant]
     Active Substance: ETORICOXIB

REACTIONS (1)
  - Tendonitis [Not Recovered/Not Resolved]
